FAERS Safety Report 9857387 (Version 2)
Quarter: 2014Q1

REPORT INFORMATION
  Report Type: Spontaneous
  Country: GB (occurrence: GB)
  Receive Date: 20140131
  Receipt Date: 20140203
  Transmission Date: 20141002
  Serious: Yes (Disabling, Other)
  Sender: FDA-Public Use
  Company Number: GB-ROCHE-1339120

PATIENT
  Sex: Female
  Weight: 45.5 kg

DRUGS (6)
  1. AVASTIN [Suspect]
     Indication: OVARIAN CANCER
     Route: 065
  2. ENTACAPONE [Concomitant]
     Route: 065
     Dates: start: 20121019
  3. MIRAPEXIN [Concomitant]
     Route: 065
     Dates: start: 20121019
  4. MODOPAR [Concomitant]
     Route: 065
     Dates: start: 20100723
  5. CEFCAPENE [Concomitant]
     Route: 065
     Dates: start: 20090510
  6. ALENDRONIC ACID [Concomitant]
     Route: 065
     Dates: start: 20120306

REACTIONS (4)
  - Vaginal ulceration [Unknown]
  - Arthralgia [Unknown]
  - Pain in extremity [Unknown]
  - Tenderness [Unknown]
